FAERS Safety Report 9697363 (Version 1)
Quarter: 2013Q4

REPORT INFORMATION
  Report Type: Spontaneous
  Country: US (occurrence: None)
  Receive Date: 20131119
  Receipt Date: 20131119
  Transmission Date: 20140711
  Serious: No
  Sender: FDA-Public Use
  Company Number: None

PATIENT
  Sex: Male
  Weight: 94.5 kg

DRUGS (1)
  1. FOSINOPRIL [Suspect]
     Indication: HYPERTENSION
     Route: 048
     Dates: start: 20100609, end: 20131028

REACTIONS (1)
  - Angioedema [None]
